FAERS Safety Report 7512009-X (Version None)
Quarter: 2011Q2

REPORT INFORMATION
  Report Type: 
  Country: None (occurrence: None)
  Receive Date: 20110519
  Receipt Date: 20110509
  Transmission Date: 20111010
  Serious: Yes (Death)
  Sender: FDA-Public Use
  Company Number: 1000020895

PATIENT
  Sex: Female

DRUGS (2)
  1. CITALOPRAM HYDROBROMIDE [Suspect]
     Dosage: 1600 MG (1600 MG,ONCE),ORAL
     Route: 048
  2. ALCOHOL (ETHANOL) [Suspect]

REACTIONS (1)
  - INCORRECT DOSE ADMINISTERED [None]
